FAERS Safety Report 11729822 (Version 1)
Quarter: 2015Q4

REPORT INFORMATION
  Report Type: Spontaneous
  Country: US (occurrence: US)
  Receive Date: 20151110
  Receipt Date: 20151110
  Transmission Date: 20160304
  Serious: No
  Sender: FDA-Public Use
  Company Number: US-ELI_LILLY_AND_COMPANY-US201201000923

PATIENT
  Age: 72 Year
  Sex: Female

DRUGS (2)
  1. FORTEO [Suspect]
     Active Substance: TERIPARATIDE
     Dosage: 20 UG, QD
     Route: 065
  2. FORTEO [Suspect]
     Active Substance: TERIPARATIDE
     Indication: OSTEOPOROSIS
     Dosage: 20 UG, QD
     Route: 065
     Dates: start: 20111228

REACTIONS (10)
  - Swollen tongue [Recovered/Resolved]
  - Feeling abnormal [Unknown]
  - Injection site pain [Unknown]
  - Dizziness [Not Recovered/Not Resolved]
  - Bone pain [Recovered/Resolved]
  - Urticaria [Recovered/Resolved]
  - Swelling face [Recovered/Resolved]
  - Malaise [Not Recovered/Not Resolved]
  - Adverse reaction [Unknown]
  - Pain in jaw [Not Recovered/Not Resolved]

NARRATIVE: CASE EVENT DATE: 20111228
